FAERS Safety Report 21683583 (Version 1)
Quarter: 2022Q4

REPORT INFORMATION
  Report Type: Spontaneous
  Country: US (occurrence: US)
  Receive Date: 20221205
  Receipt Date: 20221205
  Transmission Date: 20230113
  Serious: Yes (Hospitalization)
  Sender: FDA-Public Use
  Company Number: US-GILEAD-2022-0605110

PATIENT
  Age: 18 Year
  Sex: Male
  Weight: 58.19 kg

DRUGS (3)
  1. LETAIRIS [Suspect]
     Active Substance: AMBRISENTAN
     Indication: Pulmonary arterial hypertension
     Dosage: 5 MG
     Route: 048
     Dates: start: 20220815
  2. SILDENAFIL [Concomitant]
     Active Substance: SILDENAFIL
     Dosage: 20 MG
     Route: 048
     Dates: start: 20220317
  3. POLYETHYLENE GLYCOLS [Concomitant]
     Active Substance: POLYETHYLENE GLYCOLS
     Dosage: 17 OZ
     Route: 048
     Dates: start: 20220815

REACTIONS (1)
  - Hypersensitivity [Recovered/Resolved]
